FAERS Safety Report 15315948 (Version 1)
Quarter: 2018Q3

REPORT INFORMATION
  Report Type: Report from Study
  Country: US (occurrence: US)
  Receive Date: 20180824
  Receipt Date: 20180824
  Transmission Date: 20181010
  Serious: Yes (Hospitalization, Other)
  Sender: FDA-Public Use
  Company Number: US-BRISTOL-MYERS SQUIBB COMPANY-BMS-2018-067985

PATIENT
  Age: 71 Year
  Sex: Male
  Weight: 104.1 kg

DRUGS (2)
  1. IPILIMUMAB [Suspect]
     Active Substance: IPILIMUMAB
     Indication: ADENOCARCINOMA
     Dosage: 1 MG/KG, DOSE 1 MG/KG OVER 60 MINUTES ON DAY 1
     Route: 042
     Dates: start: 20180511, end: 20180622
  2. NIVOLUMAB [Suspect]
     Active Substance: NIVOLUMAB
     Indication: ADENOCARCINOMA
     Dosage: 240 MG, Q2WK; 240 MG OVER 30 MINUTES ON DAYS 1, 15, AND 29
     Route: 042
     Dates: start: 20180511, end: 20180622

REACTIONS (2)
  - Enterocolitis infectious [Unknown]
  - Enteritis [Unknown]

NARRATIVE: CASE EVENT DATE: 20180705
